FAERS Safety Report 9365088 (Version 1)
Quarter: 2013Q2

REPORT INFORMATION
  Report Type: Report from Study
  Country: US (occurrence: US)
  Receive Date: 20130624
  Receipt Date: 20130624
  Transmission Date: 20140414
  Serious: Yes (Hospitalization)
  Sender: FDA-Public Use
  Company Number: PHEH2011US013346

PATIENT
  Age: 63 Year
  Sex: Male

DRUGS (1)
  1. TOBI [Suspect]
     Indication: PSEUDOMONAS INFECTION
     Dosage: 300/5 MG/L, BID
     Dates: start: 20110713, end: 20110802

REACTIONS (2)
  - Pulmonary mass [Recovering/Resolving]
  - Pneumothorax [Recovering/Resolving]
